FAERS Safety Report 7308992-8 (Version None)
Quarter: 2011Q1

REPORT INFORMATION
  Report Type: 
  Country: None (occurrence: None)
  Receive Date: 20110211
  Receipt Date: 20110204
  Transmission Date: 20110831
  Serious: Yes (Death, Life-Threatening, Other)
  Sender: FDA-Public Use
  Company Number: 2009US004065

PATIENT
  Age: 64 Year
  Sex: Male

DRUGS (7)
  1. OMEPRAZOLE [Concomitant]
  2. MYCOPHENOLATE MOFETIL [Concomitant]
  3. PREDNISOLONE [Concomitant]
  4. PROGRAF [Suspect]
     Indication: LIVER TRANSPLANT
     Dosage: 2 MG,UID/QD, ORAL
     Route: 048
     Dates: start: 20080801, end: 20091112
  5. USARCOL (USARCOL) [Concomitant]
  6. NIFEDIPINE [Concomitant]
  7. LOVASTATIN [Concomitant]

REACTIONS (2)
  - NEOPLASM MALIGNANT [None]
  - METASTASIS [None]
